FAERS Safety Report 23800381 (Version 1)
Quarter: 2024Q2

REPORT INFORMATION
  Report Type: Spontaneous
  Country: US (occurrence: US)
  Receive Date: 20240430
  Receipt Date: 20240430
  Transmission Date: 20240715
  Serious: Yes (Disabling, Other)
  Sender: FDA-Public Use
  Company Number: US-SANOFI-02024290

PATIENT
  Age: 65 Year
  Sex: Female

DRUGS (1)
  1. LANTUS SOLOSTAR [Suspect]
     Active Substance: INSULIN GLARGINE
     Indication: Diabetic complication
     Dosage: 30 IU, QD
     Route: 058
     Dates: start: 20230524

REACTIONS (3)
  - Cerebrovascular accident [Unknown]
  - Disability [Unknown]
  - Renal transplant [Unknown]
